FAERS Safety Report 17960514 (Version 1)
Quarter: 2020Q2

REPORT INFORMATION
  Report Type: Spontaneous
  Country: US (occurrence: US)
  Receive Date: 20200626
  Receipt Date: 20200626
  Transmission Date: 20200714
  Serious: Yes (Life-Threatening, Hospitalization, Disabling)
  Sender: FDA-Public Use
  Company Number: None

PATIENT
  Age: 26 Year
  Sex: Female
  Weight: 46.8 kg

DRUGS (5)
  1. LAFOLIE HAIR THERAPY HEALTHY HAIR VITABLEND [Suspect]
     Active Substance: MINERALS\VITAMINS
  2. LAFOLIE HAIR THERAPY GROWTH SERUM [Suspect]
     Active Substance: MINOXIDIL
     Indication: ALOPECIA
     Dosage: ?          QUANTITY:1 GTT DROP(S);?
     Route: 061
     Dates: start: 20180306
  3. LAFOLIE HAIR THERAPY GROWTH SERUM [Suspect]
     Active Substance: MINOXIDIL
     Indication: MALNUTRITION
     Dosage: ?          QUANTITY:1 GTT DROP(S);?
     Route: 061
     Dates: start: 20180306
  4. LAFOLIE HAIR THERAPY GROWTH SERUM [Suspect]
     Active Substance: MINOXIDIL
     Indication: PROPHYLAXIS
     Dosage: ?          QUANTITY:1 GTT DROP(S);?
     Route: 061
     Dates: start: 20180306
  5. MINOXIDIL. [Suspect]
     Active Substance: MINOXIDIL

REACTIONS (5)
  - Staphylococcal infection [None]
  - Abscess [None]
  - Folliculitis [None]
  - Swelling [None]
  - Alopecia [None]

NARRATIVE: CASE EVENT DATE: 20180306
